FAERS Safety Report 7170029-1 (Version None)
Quarter: 2010Q4

REPORT INFORMATION
  Report Type: 
  Country: None (occurrence: None)
  Receive Date: 20101217
  Receipt Date: 20101213
  Transmission Date: 20110411
  Serious: No
  Sender: FDA-Public Use
  Company Number: JP-SANOFI-AVENTIS-2010SA073376

PATIENT
  Age: 78 Year
  Sex: Male

DRUGS (2)
  1. LASIX [Suspect]
     Indication: OEDEMA
     Route: 048
     Dates: end: 20100919
  2. HERBAL PREPARATION [Suspect]
     Route: 048

REACTIONS (1)
  - PSEUDOALDOSTERONISM [None]
